FAERS Safety Report 7766822-4 (Version None)
Quarter: 2011Q3

REPORT INFORMATION
  Report Type: 
  Country: None (occurrence: None)
  Receive Date: 20110922
  Receipt Date: 20110519
  Transmission Date: 20111222
  Serious: No
  Sender: FDA-Public Use
  Company Number: US-ASTRAZENECA-2011SE30647

PATIENT
  Sex: Female

DRUGS (3)
  1. COLD MEDICINE [Concomitant]
  2. SEROQUEL [Suspect]
     Indication: MENTAL DISABILITY
     Route: 048
  3. SEROQUEL XR [Suspect]
     Indication: MENTAL DISORDER
     Route: 048

REACTIONS (2)
  - APPETITE DISORDER [None]
  - FATIGUE [None]
